FAERS Safety Report 13881471 (Version 2)
Quarter: 2017Q3

REPORT INFORMATION
  Report Type: Spontaneous
  Country: DE (occurrence: DE)
  Receive Date: 20170818
  Receipt Date: 20170905
  Transmission Date: 20171127
  Serious: Yes (Other)
  Sender: FDA-Public Use
  Company Number: DE-TEVA-797354GER

PATIENT
  Age: 46 Year
  Sex: Female
  Weight: 70 kg

DRUGS (4)
  1. PREDNISOLONE. [Concomitant]
     Active Substance: PREDNISOLONE
     Indication: POLYARTHRITIS
     Dosage: IN THE BEGINNING 30 MG, THEN 5 MG REDUCED EVERY WEEK
     Route: 065
     Dates: start: 20170227, end: 2017
  2. CELECOXIB-ACTAVIS 200 MG HARD CAPSULES [Suspect]
     Active Substance: CELECOXIB
     Indication: RHEUMATIC DISORDER
     Dosage: 400 MILLIGRAM DAILY;
     Route: 048
     Dates: start: 20170307, end: 20170409
  3. CELECOXIB-ACTAVIS 200 MG HARD CAPSULES [Suspect]
     Active Substance: CELECOXIB
     Indication: PAIN
  4. METHOTREXAT 10 MG [Concomitant]
     Indication: AUTOIMMUNE DISORDER
     Route: 058
     Dates: start: 201609

REACTIONS (21)
  - Arthralgia [Unknown]
  - Paraesthesia [Recovered/Resolved]
  - Dyspnoea [Recovered/Resolved]
  - Oedema peripheral [Unknown]
  - Musculoskeletal discomfort [Unknown]
  - Oropharyngeal blistering [Recovered/Resolved]
  - Chest pain [Recovered/Resolved]
  - Abdominal pain upper [Recovering/Resolving]
  - Dyspepsia [Recovered/Resolved]
  - Nasal congestion [Unknown]
  - Cough [Unknown]
  - Myalgia [Unknown]
  - Pharyngeal oedema [Recovered/Resolved]
  - Pruritus [Unknown]
  - Skin burning sensation [Recovered/Resolved]
  - Nausea [Unknown]
  - Headache [Unknown]
  - Swelling face [Unknown]
  - Feeling hot [Unknown]
  - Fluid retention [Recovered/Resolved]
  - Palpitations [Recovered/Resolved]

NARRATIVE: CASE EVENT DATE: 201703
